FAERS Safety Report 23993672 (Version 1)
Quarter: 2024Q2

REPORT INFORMATION
  Report Type: Spontaneous
  Country: US (occurrence: None)
  Receive Date: 20240618
  Receipt Date: 20240618
  Transmission Date: 20240716
  Serious: Yes (Hospitalization)
  Sender: FDA-Public Use
  Company Number: None

PATIENT
  Age: 77 Year
  Sex: Male

DRUGS (11)
  1. AUSTEDO [Suspect]
     Active Substance: DEUTETRABENAZINE
     Indication: Tardive dyskinesia
     Dosage: FREQUENCY : TWICE A DAY;?
     Dates: start: 20240311
  2. BUPROPION [Concomitant]
     Active Substance: BUPROPION
  3. LOSARTAN [Concomitant]
     Active Substance: LOSARTAN
  4. LORAZEPAM [Concomitant]
     Active Substance: LORAZEPAM
  5. METOPROLOL SUCCINATE [Concomitant]
     Active Substance: METOPROLOL SUCCINATE
  6. MIRTAZAPINE [Concomitant]
     Active Substance: MIRTAZAPINE
  7. CYPROHEPTADINE [Concomitant]
     Active Substance: CYPROHEPTADINE
  8. PREGABALIN [Concomitant]
     Active Substance: PREGABALIN
  9. OXYBUTNIN ER [Concomitant]
  10. MONTELUKAST [Concomitant]
     Active Substance: MONTELUKAST SODIUM
  11. SODIUM/POTASSIUM/MAGNESIUM ORAL SOLUTION [Concomitant]

REACTIONS (1)
  - Hospitalisation [None]
